FAERS Safety Report 10658176 (Version 1)
Quarter: 2014Q4

REPORT INFORMATION
  Report Type: Report from Study
  Country: FR (occurrence: FR)
  Receive Date: 20141217
  Receipt Date: 20141217
  Transmission Date: 20150529
  Serious: Yes (Hospitalization)
  Sender: FDA-Public Use
  Company Number: FR-MALLINCKRODT-T201404456

PATIENT
  Age: 64 Year
  Sex: Female

DRUGS (1)
  1. OPTIJECT 350 [Suspect]
     Active Substance: IOVERSOL
     Indication: SCAN
     Dosage: 110 ML, SINGLE, 2.3 ML/SECOND
     Route: 042
     Dates: start: 20141210, end: 20141210

REACTIONS (3)
  - Type I hypersensitivity [Recovered/Resolved]
  - Hypotension [Recovered/Resolved]
  - Tachycardia [Recovered/Resolved]

NARRATIVE: CASE EVENT DATE: 20141210
